FAERS Safety Report 26213529 (Version 1)
Quarter: 2025Q4

REPORT INFORMATION
  Report Type: Report from Study
  Country: EU (occurrence: EU)
  Receive Date: 20251230
  Receipt Date: 20251230
  Transmission Date: 20260117
  Serious: Yes (Other)
  Sender: TEVA
  Company Number: EU-TEVA-VS-3405681

PATIENT
  Age: 66 Year
  Sex: Female

DRUGS (13)
  1. TERIPARATIDE [Suspect]
     Active Substance: TERIPARATIDE
     Indication: Osteoporosis
     Dosage: DOSE: 20 MCG/80 MCL
     Route: 065
     Dates: start: 20250716
  2. DULOXETINE [Concomitant]
     Active Substance: DULOXETINE
     Indication: Depression
     Dosage: 90, DOSAGE: 1-0-0; START DATE: SOME TIME AGO; END DATE: CONTINUED
  3. PANTOPRAZOLE SODIUM [Concomitant]
     Active Substance: PANTOPRAZOLE SODIUM
     Indication: Gastrointestinal disorder
     Dosage: DOSAGE: 1-0-0 ; START DATE: SOME TIME AGO; END DATE: CONTINUED
  4. ATORVASTATIN [Concomitant]
     Active Substance: ATORVASTATIN
     Indication: Dyslipidaemia
     Dosage: DOSAGE: 0-0-1; START DATE: SOME TIME AGO; END DATE: CONTINUED
  5. MST (Morfina) [Concomitant]
     Indication: Pain
     Dosage: 30, DOSAGE: 1-0-0; START DATE: SOME TIME AGO; END DATE: CONTINUED
  6. MST (Morfina) [Concomitant]
     Indication: Pain
     Dosage: 10, DOSAGE: 1-0-0; START DATE: SOME TIME AGO; END DATE: CONTINUED
  7. MORPHINE [Concomitant]
     Active Substance: MORPHINE
     Indication: Pain
     Dosage: TIME INTERVAL: AS NECESSARY: 10, DOSAGE: RESCUE IF NECESSARY; START DATE: SOME TIME AGO; END DATE...
  8. ENALAPRIL\HYDROCHLOROTHIAZIDE [Concomitant]
     Active Substance: ENALAPRIL\HYDROCHLOROTHIAZIDE
     Indication: Hypertension
     Dosage: 20/12.5, DOSAGE: 1-0-0; START DATE: SOME TIME AGO; END DATE: CONTINUED
  9. DIAZEPAM [Concomitant]
     Active Substance: DIAZEPAM
     Indication: Anxiety
     Dosage: 5, DOSAGE:1-0-2; START DATE: SOME TIME AGO; END DATE: CONTINUED
  10. BUSCAPINA [Concomitant]
     Indication: Flatulence
     Dosage: TIME INTERVAL: AS NECESSARY: DOSAGE: IF NEEDED; START DATE: SOME TIME AGO; END DATE: CONTINUED
  11. Nolotil [Concomitant]
     Indication: Pain
     Dosage: 575, DOSAGE: EVERY 12 HOURS (11:30 AND 23:30); START DATE: SOME TIME AGO; END DATE: CONTINUED
  12. AMLODIPINE BESYLATE [Concomitant]
     Active Substance: AMLODIPINE BESYLATE
     Indication: Hypertension
     Dosage: DOSAGE:0-0-1; START DATE: SOME TIME AGO; END DATE: CONTINUED
  13. CASENLAX [Concomitant]
     Indication: Constipation
     Dosage: TIME INTERVAL: AS NECESSARY: DOSAGE: IF NEEDED; START DATE: SOME TIME AGO; END DATE: CONTINUED

REACTIONS (8)
  - Blood cholesterol increased [Not Recovered/Not Resolved]
  - Micturition disorder [Not Recovered/Not Resolved]
  - Constipation [Not Recovered/Not Resolved]
  - Oliguria [Not Recovered/Not Resolved]
  - Dysuria [Not Recovered/Not Resolved]
  - Flatulence [Not Recovered/Not Resolved]
  - Abdominal distension [Not Recovered/Not Resolved]
  - Weight increased [Not Recovered/Not Resolved]

NARRATIVE: CASE EVENT DATE: 20250701
